FAERS Safety Report 6369351-8 (Version None)
Quarter: 2009Q3

REPORT INFORMATION
  Report Type: 
  Country: None (occurrence: None)
  Receive Date: 20090917
  Receipt Date: 20090901
  Transmission Date: 20100115
  Serious: Yes (Other)
  Sender: FDA-Public Use
  Company Number: B0592757A

PATIENT
  Age: 35 Year
  Sex: Female

DRUGS (12)
  1. ROSIGLITAZONE MALEATE [Suspect]
     Indication: TYPE 2 DIABETES MELLITUS
  2. ASPIRIN [Suspect]
  3. EXENATIDE (FORMULATION UNKNOWN) (EXENATIDE) [Suspect]
  4. METFORMIN HCL [Suspect]
  5. INT. LONG-ACTING INSULIN (FORMULATION UNKNOWN) (INT. LONG-ACTING INSUL [Suspect]
  6. FOSINOPRIL SODIUM [Suspect]
  7. METOPROLOL TARTRATE [Suspect]
  8. ATORVASTATIN CALCIUM [Suspect]
  9. NITROFURANTOIN [Suspect]
     Indication: URINARY TRACT INFECTION
  10. INSULIN LISPRO (FORMULATION UNKNOWN) (INSULIN LISPRO) [Suspect]
  11. MAGNESIUM SULFATE [Suspect]
  12. ANTIBIOTICS (FORMULATION UNKNOWN) (ANTIBIOTICS) [Suspect]

REACTIONS (6)
  - AMNIOTIC CAVITY INFECTION [None]
  - CAESAREAN SECTION [None]
  - GLYCOSYLATED HAEMOGLOBIN INCREASED [None]
  - PRE-ECLAMPSIA [None]
  - PREGNANCY [None]
  - URINARY TRACT INFECTION [None]
